FAERS Safety Report 8809339 (Version 2)
Quarter: 2012Q4

REPORT INFORMATION
  Report Type: 
  Country: ES (occurrence: ES)
  Receive Date: 20120926
  Receipt Date: 20121008
  Transmission Date: 20130627
  Serious: Yes (Other)
  Sender: FDA-Public Use
  Company Number: ES-VERTEX PHARMACEUTICAL INC.-2012-021844

PATIENT
  Age: 55 Year
  Sex: Male
  Weight: 120 kg

DRUGS (6)
  1. INCIVO [Suspect]
     Indication: HEPATITIS C
     Dosage: 1150 mg, bid
     Route: 048
     Dates: start: 20120411, end: 20120806
  2. RIBAVIRIN [Suspect]
     Indication: HEPATITIS C
     Dosage: Dosage Form: Unknown
     Route: 065
     Dates: start: 20120411, end: 20120810
  3. INTERFERON ALFA [Suspect]
     Indication: HEPATITIS C
     Dosage: Dosage Form: Unknown
     Route: 065
     Dates: start: 20120411, end: 20120806
  4. TRUVADA [Concomitant]
     Indication: HIV INFECTION
  5. ATAZANAVIR [Concomitant]
     Indication: HIV INFECTION
  6. NORVIR [Concomitant]
     Indication: HIV INFECTION

REACTIONS (1)
  - Leukocytoclastic vasculitis [Recovered/Resolved]
